FAERS Safety Report 9007405 (Version 1)
Quarter: 2013Q1

REPORT INFORMATION
  Report Type: Spontaneous
  Country: US (occurrence: US)
  Receive Date: 20130110
  Receipt Date: 20130110
  Transmission Date: 20140127
  Serious: No
  Sender: FDA-Public Use
  Company Number: US-PFIZER INC-2013009107

PATIENT
  Age: 73 Year
  Sex: Female

DRUGS (11)
  1. LIPITOR [Suspect]
  2. LYRICA [Suspect]
  3. AZITHROMYCIN [Suspect]
  4. NAPROXEN [Suspect]
  5. ERYTHROMYCIN [Suspect]
  6. CRESTOR [Suspect]
  7. AVELOX [Suspect]
  8. KEFLEX [Suspect]
  9. PRAVACHOL [Suspect]
  10. WELLBUTRIN [Suspect]
  11. ZETIA [Suspect]

REACTIONS (1)
  - Drug hypersensitivity [Unknown]
